FAERS Safety Report 13714068 (Version 2)
Quarter: 2017Q3

REPORT INFORMATION
  Report Type: Report from Study
  Country: US (occurrence: US)
  Receive Date: 20170704
  Receipt Date: 20170731
  Transmission Date: 20171127
  Serious: Yes (Death, Hospitalization)
  Sender: FDA-Public Use
  Company Number: US-ACTELION-A-NJ2017-156144

PATIENT
  Age: 16 Month
  Sex: Female

DRUGS (7)
  1. SILDENAFIL. [Concomitant]
     Active Substance: SILDENAFIL
     Dosage: 1.6 UNK, Q6HRS
  2. KEPPRA [Concomitant]
     Active Substance: LEVETIRACETAM
     Dosage: 3 UNK, UNK
  3. LASIX [Concomitant]
     Active Substance: FUROSEMIDE
     Dosage: 1 ML, UNK
  4. VITAMINS [Concomitant]
     Active Substance: VITAMINS
     Dosage: 500 MG, UNK
  5. TRACLEER [Suspect]
     Active Substance: BOSENTAN
     Dosage: 4 UNK, UNK
     Route: 048
  6. TRACLEER [Suspect]
     Active Substance: BOSENTAN
     Indication: PULMONARY ARTERIAL HYPERTENSION
     Dosage: 8.1 MG, BID
     Route: 048
     Dates: start: 20161215
  7. CLONIDIN [Concomitant]
     Active Substance: CLONIDINE
     Dosage: 0.1 UNK, Q6HRS

REACTIONS (4)
  - Bronchopulmonary dysplasia [Fatal]
  - Pneumonia [Unknown]
  - Disease complication [Fatal]
  - Premature baby [Fatal]

NARRATIVE: CASE EVENT DATE: 20170614
